FAERS Safety Report 13209223 (Version 1)
Quarter: 2017Q1

REPORT INFORMATION
  Report Type: Spontaneous
  Country: US (occurrence: US)
  Receive Date: 20170209
  Receipt Date: 20170209
  Transmission Date: 20170428
  Serious: No
  Sender: FDA-Public Use
  Company Number: US-PERRIGO-16US017395

PATIENT
  Age: 1 Year
  Sex: Female
  Weight: 9.52 kg

DRUGS (4)
  1. BENADRYL [Concomitant]
     Active Substance: DIPHENHYDRAMINE HYDROCHLORIDE
     Indication: ANAPHYLACTIC REACTION
     Dosage: UNK, PRN
     Route: 065
     Dates: start: 2015
  2. EPIPEN [Concomitant]
     Active Substance: EPINEPHRINE
     Indication: ANAPHYLACTIC REACTION
     Dosage: UNK, PRN
     Route: 065
     Dates: start: 2015
  3. IBUPROFEN. [Suspect]
     Active Substance: IBUPROFEN
     Dosage: 100 MG, PRN
     Route: 048
     Dates: start: 201604, end: 201605
  4. IBUPROFEN. [Suspect]
     Active Substance: IBUPROFEN
     Indication: TEETHING
     Dosage: 75 MG, PRN
     Route: 048
     Dates: start: 201602, end: 201604

REACTIONS (5)
  - Regurgitation [Recovered/Resolved]
  - Insomnia [Recovered/Resolved]
  - Drug administered to patient of inappropriate age [Recovered/Resolved]
  - Abdominal discomfort [Recovered/Resolved]
  - Flatulence [Recovered/Resolved]

NARRATIVE: CASE EVENT DATE: 201602
